FAERS Safety Report 6066696-6 (Version None)
Quarter: 2009Q1

REPORT INFORMATION
  Report Type: 
  Country: None (occurrence: None)
  Receive Date: 20090205
  Receipt Date: 20080209
  Transmission Date: 20090719
  Serious: No
  Sender: FDA-Public Use
  Company Number: US-ABBOTT-08P-163-0438326-00

PATIENT
  Sex: Female
  Weight: 129.39 kg

DRUGS (7)
  1. VICODIN [Suspect]
     Indication: PAIN
     Route: 048
     Dates: start: 20080203, end: 20080203
  2. PRINZIDE [Concomitant]
     Indication: HYPERTENSION
     Route: 048
  3. MELOXICAM [Concomitant]
     Indication: PAIN IN EXTREMITY
     Route: 048
  4. PROZASTATIN SODIUM [Concomitant]
     Indication: BLOOD CHOLESTEROL
     Route: 048
  5. FUROSEMIDE [Concomitant]
     Indication: FLUID RETENTION
     Route: 048
  6. BACLIFEN [Concomitant]
     Indication: BACK PAIN
     Route: 048
  7. NEBULIZER [Concomitant]
     Indication: CHRONIC OBSTRUCTIVE PULMONARY DISEASE
     Route: 055

REACTIONS (2)
  - PRURITUS [None]
  - URTICARIA [None]
